FAERS Safety Report 8886295 (Version 2)
Quarter: 2013Q1

REPORT INFORMATION
  Report Type: Spontaneous
  Country: US (occurrence: US)
  Receive Date: 20121105
  Receipt Date: 20130122
  Transmission Date: 20140127
  Serious: No
  Sender: FDA-Public Use
  Company Number: US-009507513-1211USA000933

PATIENT
  Age: 61 Year
  Sex: Male

DRUGS (3)
  1. PEGINTRON [Suspect]
     Indication: HEPATITIS C
     Dosage: 96 MICROGRAM, QW
     Dates: start: 20120924
  2. RIBAPAK [Suspect]
     Indication: HEPATITIS C
  3. TELAPREVIR [Suspect]
     Indication: HEPATITIS C

REACTIONS (5)
  - Chills [Not Recovered/Not Resolved]
  - Headache [Not Recovered/Not Resolved]
  - Sweat gland disorder [Not Recovered/Not Resolved]
  - Haemorrhoids [Not Recovered/Not Resolved]
  - Gastrooesophageal reflux disease [Not Recovered/Not Resolved]
